FAERS Safety Report 22384550 (Version 3)
Quarter: 2023Q2

REPORT INFORMATION
  Report Type: Spontaneous
  Country: US (occurrence: US)
  Receive Date: 20230530
  Receipt Date: 20230614
  Transmission Date: 20230721
  Serious: Yes (Hospitalization, Other)
  Sender: FDA-Public Use
  Company Number: US-Blueprint Medicines Corporation-SP-US-2023-000863

PATIENT
  Age: 70 Year
  Sex: Female

DRUGS (4)
  1. AYVAKIT [Suspect]
     Active Substance: AVAPRITINIB
     Indication: Systemic mastocytosis
     Dosage: 1 TABLET DAILY ALTERNATING WITH 100 MG
     Route: 065
     Dates: start: 20211011
  2. AYVAKIT [Suspect]
     Active Substance: AVAPRITINIB
     Dosage: 1 TABLET DAILY ALTERNATING WITH 200 MG
     Route: 065
     Dates: start: 20211011
  3. AYVAKIT [Suspect]
     Active Substance: AVAPRITINIB
     Dosage: TAKE 100 MG DAILY ALTERNATING WITH 200 MG
     Route: 065
  4. AYVAKIT [Suspect]
     Active Substance: AVAPRITINIB
     Route: 065

REACTIONS (6)
  - Pneumonia [Unknown]
  - Atrial fibrillation [Unknown]
  - Internal haemorrhage [Unknown]
  - Haemoglobin abnormal [Not Recovered/Not Resolved]
  - White blood cell count increased [Recovered/Resolved]
  - Nausea [Unknown]

NARRATIVE: CASE EVENT DATE: 20230512
